FAERS Safety Report 8987736 (Version 2)
Quarter: 2013Q2

REPORT INFORMATION
  Report Type: Spontaneous
  Country: US (occurrence: US)
  Receive Date: 20121227
  Receipt Date: 20130405
  Transmission Date: 20140414
  Serious: No
  Sender: FDA-Public Use
  Company Number: US-PFIZER INC-2012326911

PATIENT
  Age: 62 Year
  Sex: Female
  Weight: 64.4 kg

DRUGS (3)
  1. XELJANZ [Suspect]
     Indication: RHEUMATOID ARTHRITIS
     Dosage: 5 MG, 2X/DAY
     Route: 048
     Dates: start: 201212, end: 20121219
  2. ACTOS [Concomitant]
     Indication: TYPE 2 DIABETES MELLITUS
     Dosage: 30 MG, DAILY
  3. METHADONE [Concomitant]
     Dosage: UNK

REACTIONS (4)
  - Influenza like illness [Not Recovered/Not Resolved]
  - Oropharyngeal pain [Recovering/Resolving]
  - Dysphagia [Not Recovered/Not Resolved]
  - Upper respiratory tract infection [Recovering/Resolving]
